FAERS Safety Report 4462525-2 (Version None)
Quarter: 2004Q3

REPORT INFORMATION
  Report Type: 
  Country: None (occurrence: None)
  Receive Date: 20040929
  Receipt Date: 20031009
  Transmission Date: 20050211
  Serious: Yes (Hospitalization, Disabling)
  Sender: FDA-Public Use
  Company Number: US-MERCK-0310USA01306

PATIENT
  Age: 43 Year
  Sex: Male
  Weight: 81 kg

DRUGS (2)
  1. VIOXX [Suspect]
     Indication: PAIN
     Route: 048
     Dates: start: 20010912, end: 20010921
  2. VIOXX [Suspect]
     Indication: ARTHRITIS
     Route: 048
     Dates: start: 20010912, end: 20010921

REACTIONS (14)
  - BLOOD PRESSURE DECREASED [None]
  - BRONCHITIS [None]
  - CALCINOSIS [None]
  - CORONARY ARTERY DISEASE [None]
  - ELECTROCARDIOGRAM REPOLARISATION ABNORMALITY [None]
  - EMOTIONAL DISTRESS [None]
  - HAEMOGLOBIN DECREASED [None]
  - JOINT RANGE OF MOTION DECREASED [None]
  - JOINT SWELLING [None]
  - MYOCARDIAL INFARCTION [None]
  - ROTATOR CUFF SYNDROME [None]
  - SINUSITIS [None]
  - TENDONITIS [None]
  - UPPER RESPIRATORY TRACT INFECTION [None]
